FAERS Safety Report 5888776-8 (Version None)
Quarter: 2008Q3

REPORT INFORMATION
  Report Type: 
  Country: None (occurrence: None)
  Receive Date: 20080917
  Receipt Date: 20080917
  Transmission Date: 20090109
  Serious: Yes (Hospitalization)
  Sender: FDA-Public Use
  Company Number: None

PATIENT
  Sex: Female
  Weight: 77.3 kg

DRUGS (1)
  1. TEMOZOLOMIDE [Suspect]
     Dosage: 2610 MG

REACTIONS (5)
  - BRAIN NEOPLASM [None]
  - DEPRESSED LEVEL OF CONSCIOUSNESS [None]
  - HEMIPLEGIA [None]
  - NEOPLASM PROGRESSION [None]
  - PARTIAL SEIZURES [None]
